FAERS Safety Report 10649116 (Version 1)
Quarter: 2014Q4

REPORT INFORMATION
  Report Type: Spontaneous
  Country: JP (occurrence: None)
  Receive Date: 20141210
  Receipt Date: 20141210
  Transmission Date: 20150529
  Serious: Yes (Other)
  Sender: FDA-Public Use
  Company Number: JP-017908

PATIENT
  Sex: Female

DRUGS (1)
  1. DESMOPRESSIN (DEMOPRESSIN) 250UG [Suspect]
     Active Substance: DESMOPRESSIN
     Indication: DIABETES INSIPIDUS
     Dosage: 0.05ML BID NASAL
     Route: 045
     Dates: start: 201410

REACTIONS (6)
  - Chest discomfort [None]
  - Choking [None]
  - Deafness [None]
  - Productive cough [None]
  - Dysphonia [None]
  - Respiratory depression [None]
